FAERS Safety Report 9181285 (Version 1)
Quarter: 2013Q1

REPORT INFORMATION
  Report Type: Spontaneous
  Country: US (occurrence: US)
  Receive Date: 20130322
  Receipt Date: 20130322
  Transmission Date: 20140127
  Serious: No
  Sender: FDA-Public Use
  Company Number: US-MYLANLABS-2013S1000878

PATIENT
  Age: 24 Year
  Sex: Female

DRUGS (2)
  1. EMSAM [Suspect]
     Indication: BIPOLAR DISORDER
     Dosage: CHANGED Q24H
     Route: 062
     Dates: start: 201211, end: 201212
  2. LAMICTAL [Concomitant]
     Indication: BIPOLAR DISORDER
     Route: 048

REACTIONS (2)
  - Application site rash [Recovered/Resolved]
  - Application site erythema [Recovered/Resolved]
